FAERS Safety Report 5082283-0 (Version None)
Quarter: 2006Q3

REPORT INFORMATION
  Report Type: 
  Country: None (occurrence: None)
  Receive Date: 20060817
  Receipt Date: 20060417
  Transmission Date: 20061208
  Serious: Yes (Disabling, Other)
  Sender: FDA-Public Use
  Company Number: US-BAYER-200612492BWH

PATIENT
  Age: 77 Year
  Sex: Male
  Weight: 77 kg

DRUGS (6)
  1. NEXAVAR [Suspect]
     Indication: METASTATIC RENAL CELL CARCINOMA
     Dosage: TOTAL DAILY DOSE: 200 MG  UNIT DOSE: 200 MG
     Route: 048
     Dates: start: 20060728
  2. NEXAVAR [Suspect]
     Dosage: UNIT DOSE: 200 MG
     Route: 048
     Dates: start: 20060712, end: 20060727
  3. NEXAVAR [Suspect]
     Dosage: TOTAL DAILY DOSE: 400 MG  UNIT DOSE: 200 MG
     Route: 048
     Dates: start: 20060515, end: 20060604
  4. NEXAVAR [Suspect]
     Dosage: TOTAL DAILY DOSE: 800 MG  UNIT DOSE: 200 MG
     Route: 048
     Dates: start: 20060412, end: 20060514
  5. COUMADIN [Concomitant]
  6. LEVOXYL [Concomitant]

REACTIONS (12)
  - ANOREXIA [None]
  - ARRHYTHMIA [None]
  - BACK PAIN [None]
  - BLOOD PRESSURE INCREASED [None]
  - DEAFNESS [None]
  - DIARRHOEA [None]
  - DYSPHONIA [None]
  - FATIGUE [None]
  - HEARING IMPAIRED [None]
  - HYPOTRICHOSIS [None]
  - RASH [None]
  - WEIGHT DECREASED [None]
